FAERS Safety Report 15349347 (Version 2)
Quarter: 2018Q4

REPORT INFORMATION
  Report Type: Spontaneous
  Country: US (occurrence: US)
  Receive Date: 20180904
  Receipt Date: 20181217
  Transmission Date: 20190204
  Serious: Yes (Other)
  Sender: FDA-Public Use
  Company Number: US-SA-2017SA260208

PATIENT
  Age: 44 Year
  Sex: Female
  Weight: 65.77 kg

DRUGS (11)
  1. NEOSAR [Concomitant]
     Active Substance: CYCLOPHOSPHAMIDE
  2. TAXOTERE [Suspect]
     Active Substance: DOCETAXEL
     Dosage: 70 MG, QW
     Route: 042
     Dates: start: 20070611, end: 20070611
  3. COUMADIN [Concomitant]
     Active Substance: WARFARIN SODIUM
  4. TAMOXIFEN [Concomitant]
     Active Substance: TAMOXIFEN
  5. TAXOTERE [Suspect]
     Active Substance: DOCETAXEL
     Indication: BREAST CANCER
     Dosage: 70 MG, QW
     Route: 042
     Dates: start: 20070323, end: 20070323
  6. DOXORUBICIN [Concomitant]
     Active Substance: DOXORUBICIN
  7. AMITRIPTYLINE [Concomitant]
     Active Substance: AMITRIPTYLINE
  8. LASIX [Concomitant]
     Active Substance: FUROSEMIDE
  9. VALIUM [Concomitant]
     Active Substance: DIAZEPAM
  10. POTASSIUM CHLORIDE. [Concomitant]
     Active Substance: POTASSIUM CHLORIDE
  11. TEMAZEPAM. [Concomitant]
     Active Substance: TEMAZEPAM

REACTIONS (2)
  - Alopecia [Recovering/Resolving]
  - Psychological trauma [Unknown]

NARRATIVE: CASE EVENT DATE: 20071211
